FAERS Safety Report 12773073 (Version 1)
Quarter: 2016Q3

REPORT INFORMATION
  Report Type: Spontaneous
  Country: US (occurrence: US)
  Receive Date: 20160922
  Receipt Date: 20160922
  Transmission Date: 20161109
  Serious: No
  Sender: FDA-Public Use
  Company Number: US-BION-20160258

PATIENT
  Age: 42 Year
  Sex: Female
  Weight: 67.13 kg

DRUGS (1)
  1. ZYRTEC [Suspect]
     Active Substance: CETIRIZINE HYDROCHLORIDE
     Indication: SEASONAL ALLERGY
     Route: 048

REACTIONS (3)
  - Drug ineffective [Recovered/Resolved]
  - Intentional overdose [Unknown]
  - Drug effect variable [Recovered/Resolved]
